FAERS Safety Report 8180137-4 (Version None)
Quarter: 2012Q1

REPORT INFORMATION
  Report Type: 
  Country: None (occurrence: None)
  Receive Date: 20120229
  Receipt Date: 20120217
  Transmission Date: 20120608
  Serious: Yes (Hospitalization)
  Sender: FDA-Public Use
  Company Number: DSJ-2012-03052

PATIENT
  Age: 81 Year
  Sex: Female

DRUGS (2)
  1. FORMOTEROL/BUDESODINE (BUDESONIDE, FORMOTEROL) [Concomitant]
  2. BENICAR HCT [Suspect]
     Indication: HYPERTENSION
     Dosage: 40/12.5 MG (1 IN 1 D), PER ORAL
     Route: 048
     Dates: start: 20110601, end: 20120201

REACTIONS (1)
  - PNEUMONIA [None]
